FAERS Safety Report 7034908-8 (Version None)
Quarter: 2010Q4

REPORT INFORMATION
  Report Type: 
  Country: None (occurrence: None)
  Receive Date: 20101008
  Receipt Date: 20100928
  Transmission Date: 20110411
  Serious: Yes (Hospitalization)
  Sender: FDA-Public Use
  Company Number: JP-ALLERGAN-1011153US

PATIENT
  Age: 74 Year
  Sex: Male
  Weight: 62.3 kg

DRUGS (5)
  1. EPINASTINE HYDROCHLORIDE [Suspect]
     Indication: CUTANEOUS AMYLOIDOSIS
     Dosage: 20 MG, UNK
     Route: 048
     Dates: start: 20080101, end: 20090904
  2. IRON [Suspect]
     Indication: IRON DEFICIENCY ANAEMIA
     Dosage: UNK
     Route: 048
     Dates: start: 20080101, end: 20090904
  3. CALONAL [Concomitant]
     Indication: PYREXIA
     Dosage: 200 MG, SINGLE
     Route: 048
     Dates: start: 20090822, end: 20090822
  4. CONIEL [Concomitant]
     Indication: HYPERTENSION
     Dosage: UNK
     Route: 048
     Dates: start: 20080101, end: 20090904
  5. CLARITHROMYCIN [Concomitant]
     Indication: PRODUCT USED FOR UNKNOWN INDICATION
     Dosage: 200 MG, SINGLE
     Route: 048
     Dates: start: 20090822, end: 20090822

REACTIONS (1)
  - LIVER DISORDER [None]
